FAERS Safety Report 11795092 (Version 1)
Quarter: 2015Q4

REPORT INFORMATION
  Report Type: Spontaneous
  Country: FR (occurrence: FR)
  Receive Date: 20151202
  Receipt Date: 20151202
  Transmission Date: 20160305
  Serious: Yes (Hospitalization)
  Sender: FDA-Public Use
  Company Number: FR-SA-2015SA190303

PATIENT
  Age: 88 Year
  Sex: Female

DRUGS (10)
  1. DOLIPRANE [Concomitant]
     Active Substance: ACETAMINOPHEN
     Dosage: 2/8 HRS
  2. VITAMIN K1 [Concomitant]
     Active Substance: PHYTONADIONE
     Dates: start: 20151020
  3. LEVOTHYROX [Concomitant]
     Active Substance: LEVOTHYROXINE
  4. SOLUPRED [Concomitant]
     Active Substance: PREDNISOLONE
  5. INEXIUM [Concomitant]
     Active Substance: ESOMEPRAZOLE
  6. NEBIVOLOL. [Concomitant]
     Active Substance: NEBIVOLOL
  7. COUMADIN [Concomitant]
     Active Substance: WARFARIN SODIUM
     Dates: start: 20151024
  8. MOVICOL [Concomitant]
     Active Substance: POLYETHYLENE GLYCOL 3350\POTASSIUM CHLORIDE\SODIUM BICARBONATE\SODIUM CHLORIDE
     Dosage: 6/DAY
     Dates: start: 20151022
  9. LASILIX [Suspect]
     Active Substance: FUROSEMIDE
     Indication: CARDIAC FAILURE
     Route: 065
     Dates: end: 20151022
  10. AMIODARONE [Concomitant]
     Active Substance: AMIODARONE

REACTIONS (1)
  - Acute kidney injury [Not Recovered/Not Resolved]

NARRATIVE: CASE EVENT DATE: 20151024
